FAERS Safety Report 24590724 (Version 1)
Quarter: 2024Q4

REPORT INFORMATION
  Report Type: Spontaneous
  Country: SK (occurrence: SK)
  Receive Date: 20241107
  Receipt Date: 20241107
  Transmission Date: 20250115
  Serious: Yes (Other)
  Sender: SANOFI AVENTIS
  Company Number: SK-SA-2024SA317976

PATIENT
  Age: 2 Year
  Sex: Male

DRUGS (5)
  1. FLUDARABINE PHOSPHATE [Suspect]
     Active Substance: FLUDARABINE PHOSPHATE
  2. ALEMTUZUMAB [Suspect]
     Active Substance: ALEMTUZUMAB
  3. TREOSULFAN [Suspect]
     Active Substance: TREOSULFAN
  4. THIOTEPA [Suspect]
     Active Substance: THIOTEPA
  5. ETANERCEPT [Concomitant]
     Active Substance: ETANERCEPT
     Indication: Adenosine deaminase 2 deficiency

REACTIONS (5)
  - Neutropenia [Recovering/Resolving]
  - Off label use [Recovering/Resolving]
  - Parainfluenzae virus infection [Recovering/Resolving]
  - Metapneumovirus infection [Recovering/Resolving]
  - Adenovirus infection [Recovering/Resolving]
